FAERS Safety Report 25148986 (Version 3)
Quarter: 2025Q3

REPORT INFORMATION
  Report Type: Spontaneous
  Country: BR (occurrence: BR)
  Receive Date: 20250402
  Receipt Date: 20250813
  Transmission Date: 20251021
  Serious: Yes (Hospitalization, Other)
  Sender: RANBAXY
  Company Number: BR-SUN PHARMACEUTICAL INDUSTRIES LTD-2025R1-501286

PATIENT
  Age: 51 Year
  Sex: Female

DRUGS (1)
  1. EZETIMIBE\SIMVASTATIN [Suspect]
     Active Substance: EZETIMIBE\SIMVASTATIN
     Indication: Type IIa hyperlipidaemia
     Route: 065

REACTIONS (1)
  - Rhabdomyolysis [Recovering/Resolving]
